FAERS Safety Report 9382942 (Version 2)
Quarter: 2013Q3

REPORT INFORMATION
  Report Type: Spontaneous
  Country: JP (occurrence: JP)
  Receive Date: 20130703
  Receipt Date: 20130722
  Transmission Date: 20140515
  Serious: Yes (Hospitalization)
  Sender: FDA-Public Use
  Company Number: JP-GILEAD-2013-0078557

PATIENT
  Age: 74 Year
  Sex: Male

DRUGS (2)
  1. HEPSERA [Suspect]
     Indication: CHRONIC HEPATITIS B
     Dosage: 10 MG, QD
     Route: 048
     Dates: start: 20041224
  2. ZEFIX [Concomitant]
     Indication: CHRONIC HEPATITIS B
     Dosage: 100 MG, QD
     Route: 048
     Dates: start: 200306

REACTIONS (10)
  - Fanconi syndrome acquired [Unknown]
  - Osteomalacia [Unknown]
  - Hypophosphataemia [Unknown]
  - Aminoaciduria [Unknown]
  - Bone density decreased [Unknown]
  - Bone metabolism disorder [Unknown]
  - Urine phosphorus increased [Unknown]
  - Hyperphosphatasaemia [Unknown]
  - Asthenia [Unknown]
  - Arthralgia [Unknown]
